FAERS Safety Report 24797763 (Version 2)
Quarter: 2025Q2

REPORT INFORMATION
  Report Type: Spontaneous
  Country: US (occurrence: US)
  Receive Date: 20250102
  Receipt Date: 20250414
  Transmission Date: 20250717
  Serious: No
  Sender: SANOFI AVENTIS
  Company Number: US-SA-2025SA000345

PATIENT
  Sex: Female
  Weight: 67.09 kg

DRUGS (1)
  1. DUPIXENT [Suspect]
     Active Substance: DUPILUMAB
     Indication: Illness
     Dosage: 300 MG, QOW
     Route: 058

REACTIONS (4)
  - Skin discolouration [Unknown]
  - Rash [Not Recovered/Not Resolved]
  - Rebound effect [Not Recovered/Not Resolved]
  - Product dose omission issue [Unknown]
